FAERS Safety Report 18430323 (Version 1)
Quarter: 2020Q4

REPORT INFORMATION
  Report Type: Spontaneous
  Country: SE (occurrence: SE)
  Receive Date: 20201027
  Receipt Date: 20201027
  Transmission Date: 20210114
  Serious: Yes (Hospitalization, Other)
  Sender: FDA-Public Use
  Company Number: SE-ASTELLAS-2020US037560

PATIENT
  Age: 24 Year
  Sex: Female

DRUGS (14)
  1. ACETYLSALICYLIC ACID [Concomitant]
     Active Substance: ASPIRIN
     Indication: PROPHYLAXIS
     Route: 065
  2. TRIMETHOPRIM SULFAMETHOXAZOLE [Concomitant]
     Active Substance: SULFAMETHOXAZOLE\TRIMETHOPRIM
     Indication: PROPHYLAXIS
     Dosage: UNK UNK, UNKNOWN FREQ.
     Route: 065
  3. AZATHIOPRINE. [Suspect]
     Active Substance: AZATHIOPRINE
     Indication: TRANSPLANT
     Route: 065
  4. LOVENOX [LEVOFLOXACIN] [Concomitant]
     Active Substance: LEVOFLOXACIN
     Indication: PROPHYLAXIS
     Dosage: 4000 IU, ONCE DAILY (INITIATED ON PREOPERATIVE DAY 1 AND CONTINUED FOR 4 WEEKS AFTER SURGERY)
     Route: 065
  5. THYMOGLOBULINE [Suspect]
     Active Substance: LAPINE T-LYMPHOCYTE IMMUNE GLOBULIN
     Dosage: 75 MG, ONCE DAILY (ON DAY 5)
     Route: 042
  6. METHYLPREDNISOLONE. [Suspect]
     Active Substance: METHYLPREDNISOLONE
     Indication: TRANSPLANT
     Route: 042
  7. PREDNISOLONE. [Suspect]
     Active Substance: PREDNISOLONE
     Indication: TRANSPLANT
     Dosage: UNK UNK, UNKNOWN FREQ. (ON DAYS 0 TO 6 IN TAPERED DOSES OF 80 TO 5 MG)
     Route: 048
  8. TACROLIMUS. [Suspect]
     Active Substance: TACROLIMUS
     Indication: TRANSPLANT
     Dosage: 4 MG, TOTAL DOSE (ONE DOSE)
     Route: 065
  9. MYCAMINE [Suspect]
     Active Substance: MICAFUNGIN SODIUM
     Indication: ANTIFUNGAL PROPHYLAXIS
     Dosage: 100 MG, UNKNOWN FREQ. (THREE DOSES)
     Route: 042
  10. ACETYLSALICYLIC ACID [Concomitant]
     Active Substance: ASPIRIN
     Route: 065
  11. TACROLIMUS. [Suspect]
     Active Substance: TACROLIMUS
     Dosage: UNK UNK, TWICE DAILY
     Route: 065
  12. AZATHIOPRINE. [Suspect]
     Active Substance: AZATHIOPRINE
     Dosage: 2 MG/KG, ONCE DAILY (FROM DAY 0)
     Route: 048
  13. VALGANCICLOVIR. [Concomitant]
     Active Substance: VALGANCICLOVIR
     Indication: PROPHYLAXIS
     Dosage: 450 MG, ONCE DAILY (FOR 6 MONTHS)
     Route: 048
  14. THYMOGLOBULINE [Suspect]
     Active Substance: LAPINE T-LYMPHOCYTE IMMUNE GLOBULIN
     Indication: TRANSPLANT
     Dosage: 100 MG, ONCE DAILY (FOR 4 DAYS)
     Route: 042

REACTIONS (9)
  - Anaemia [Recovered/Resolved]
  - Maternal exposure during pregnancy [Unknown]
  - Vaginal infection [Recovered/Resolved]
  - Urinary tract infection bacterial [Recovered/Resolved]
  - Enterobacter infection [Recovered/Resolved]
  - Product use in unapproved indication [Unknown]
  - Enterococcal infection [Recovered/Resolved]
  - Klebsiella infection [Recovered/Resolved]
  - Premature delivery [Unknown]
